FAERS Safety Report 6069022-1 (Version None)
Quarter: 2009Q1

REPORT INFORMATION
  Report Type: 
  Country: None (occurrence: None)
  Receive Date: 20090206
  Receipt Date: 20090129
  Transmission Date: 20090719
  Serious: Yes (Hospitalization)
  Sender: FDA-Public Use
  Company Number: US-ELI_LILLY_AND_COMPANY-US200902000357

PATIENT
  Sex: Male

DRUGS (1)
  1. HUMATROPE [Suspect]
     Dosage: 1 MG, UNKNOWN
     Dates: end: 20090126

REACTIONS (3)
  - CONVULSION [None]
  - HAEMORRHAGE INTRACRANIAL [None]
  - SKULL FRACTURE [None]
